FAERS Safety Report 6344681-4 (Version None)
Quarter: 2009Q3

REPORT INFORMATION
  Report Type: 
  Country: None (occurrence: None)
  Receive Date: 20090821
  Receipt Date: 20090506
  Transmission Date: 20100115
  Serious: No
  Sender: FDA-Public Use
  Company Number: 8045972

PATIENT
  Age: 78 Year
  Sex: Female
  Weight: 76.6 kg

DRUGS (20)
  1. CIMZIA [Suspect]
     Indication: CROHN'S DISEASE
     Dosage: 400 MG SC
     Route: 058
     Dates: start: 20081024
  2. WARFARIN [Concomitant]
  3. CALCIUM CARBONATE [Concomitant]
  4. COLAZAL [Concomitant]
  5. FIBER-LAX [Concomitant]
  6. ZOCOR [Concomitant]
  7. TRAMADOL HCL [Concomitant]
  8. LEXAPRO [Concomitant]
  9. CARBIDOPA-LEVODOPA [Concomitant]
  10. FOLIC ACID [Concomitant]
  11. WELLBUTRIN [Concomitant]
  12. MECLIZINE [Concomitant]
  13. ATACAND HCT [Concomitant]
  14. CANASA [Concomitant]
  15. ROWASA [Concomitant]
  16. LOPERAMIDE [Concomitant]
  17. MERCAPTOPURINE [Concomitant]
  18. METOPROLOL TARTRATE [Concomitant]
  19. MIDRIN [Concomitant]
  20. VICODIN [Concomitant]

REACTIONS (1)
  - OROPHARYNGEAL BLISTERING [None]
